FAERS Safety Report 9715439 (Version 1)
Quarter: 2013Q4

REPORT INFORMATION
  Report Type: Report from Study
  Country: US (occurrence: US)
  Receive Date: 20131127
  Receipt Date: 20131127
  Transmission Date: 20140711
  Serious: Yes (Other)
  Sender: FDA-Public Use
  Company Number: US-ROCHE-1306935

PATIENT
  Age: 14 Year
  Sex: Female
  Weight: 46.7 kg

DRUGS (5)
  1. NUTROPIN AQ [Suspect]
     Indication: BODY HEIGHT BELOW NORMAL
     Dosage: DAILY
     Route: 058
     Dates: start: 200812, end: 20130611
  2. NUTROPIN AQ [Suspect]
     Dosage: DAILY
     Route: 058
     Dates: start: 20130611
  3. MEDROL [Concomitant]
     Dosage: DRUG NAME REPORTED AS MEDROL PAK
     Route: 048
  4. PLAQUENIL [Concomitant]
     Route: 048
  5. PREVACID [Concomitant]
     Route: 048

REACTIONS (1)
  - Growth retardation [Unknown]
